FAERS Safety Report 15713502 (Version 5)
Quarter: 2019Q2

REPORT INFORMATION
  Report Type: Report from Study
  Country: CA (occurrence: CA)
  Receive Date: 20181212
  Receipt Date: 20190416
  Transmission Date: 20190711
  Serious: Yes (Other)
  Sender: FDA-Public Use
  Company Number: CA-TAKEDA-2018TUS024469

PATIENT
  Age: 57 Year
  Sex: Male

DRUGS (7)
  1. PREDNISONE. [Concomitant]
     Active Substance: PREDNISONE
     Dosage: 20 MILLIGRAM, QID
  2. VEDOLIZUMAB [Suspect]
     Active Substance: VEDOLIZUMAB
     Dosage: 300 MILLIGRAM
     Route: 042
  3. VEDOLIZUMAB [Suspect]
     Active Substance: VEDOLIZUMAB
     Dosage: 300 MILLIGRAM
     Route: 042
  4. IRON [Concomitant]
     Active Substance: IRON
     Indication: ANAEMIA
     Dosage: UNK
  5. VEDOLIZUMAB [Suspect]
     Active Substance: VEDOLIZUMAB
     Dosage: 300 MILLIGRAM
     Route: 042
  6. VEDOLIZUMAB [Suspect]
     Active Substance: VEDOLIZUMAB
     Indication: COLITIS ULCERATIVE
     Dosage: 300 MILLIGRAM
     Route: 042
     Dates: start: 20170719
  7. VEDOLIZUMAB [Suspect]
     Active Substance: VEDOLIZUMAB
     Dosage: 300 MILLIGRAM
     Route: 042
     Dates: start: 20171129

REACTIONS (11)
  - Poor venous access [Unknown]
  - Faeces hard [Unknown]
  - Off label use [Unknown]
  - Abdominal distension [Unknown]
  - Defaecation urgency [Unknown]
  - Catheter site related reaction [Unknown]
  - Flatulence [Unknown]
  - Diarrhoea [Not Recovered/Not Resolved]
  - Pyrexia [Recovered/Resolved]
  - Nephrolithiasis [Unknown]
  - Haematochezia [Unknown]

NARRATIVE: CASE EVENT DATE: 20171129
